FAERS Safety Report 10570135 (Version 1)
Quarter: 2014Q4

REPORT INFORMATION
  Report Type: Spontaneous
  Country: FR (occurrence: FR)
  Receive Date: 20141107
  Receipt Date: 20141107
  Transmission Date: 20150529
  Serious: Yes (Other)
  Sender: FDA-Public Use
  Company Number: FR-009507513-1411FRA001596

PATIENT
  Sex: Female

DRUGS (2)
  1. TRUSOPT [Suspect]
     Active Substance: DORZOLAMIDE HYDROCHLORIDE
     Indication: GLAUCOMA
     Dosage: 1 DROP MORNING/1 DROP EVENING
     Route: 047
  2. XALATAN [Suspect]
     Active Substance: LATANOPROST
     Indication: GLAUCOMA
     Dosage: 1 GTT, QPM, BOTTLE
     Route: 047

REACTIONS (7)
  - Renal failure [Unknown]
  - Haematochezia [Not Recovered/Not Resolved]
  - Ocular discomfort [Recovering/Resolving]
  - Eyelid margin crusting [Recovered/Resolved]
  - Defaecation urgency [Not Recovered/Not Resolved]
  - Eye pain [Recovering/Resolving]
  - Eye irritation [Recovering/Resolving]
